FAERS Safety Report 14973446 (Version 1)
Quarter: 2018Q2

REPORT INFORMATION
  Report Type: Report from Study
  Country: US (occurrence: US)
  Receive Date: 20180605
  Receipt Date: 20180605
  Transmission Date: 20180711
  Serious: Yes (Hospitalization)
  Sender: FDA-Public Use
  Company Number: US-BAYER-2018-049798

PATIENT
  Age: 46 Year
  Sex: Female
  Weight: 65.1 kg

DRUGS (16)
  1. PLACEBO [Suspect]
     Active Substance: UNSPECIFIED INGREDIENT
     Indication: OSTEOSARCOMA METASTATIC
     Dosage: DAILY DOSE 160 MG
     Route: 048
     Dates: start: 20171229
  2. LIDOCAINE. [Concomitant]
     Active Substance: LIDOCAINE
     Dosage: 2 UNK, UNK
  3. ACETAMINOPHEN. [Concomitant]
     Active Substance: ACETAMINOPHEN
  4. HEPARIN [Concomitant]
     Active Substance: HEPARIN SODIUM
  5. SENNA [Concomitant]
     Active Substance: SENNA LEAF\SENNOSIDES\SENNOSIDES A AND B
     Dosage: 8.6 MG, UNK
  6. ELETRIPTAN. [Concomitant]
     Active Substance: ELETRIPTAN
  7. DIPHENHYDRAMINE. [Concomitant]
     Active Substance: DIPHENHYDRAMINE
     Dosage: 25 MG, UNK
  8. MEPERIDINE [Concomitant]
     Active Substance: MEPERIDINE
     Dosage: 25 MG/ML, UNK
  9. MENTHOL. [Concomitant]
     Active Substance: MENTHOL
     Dosage: 10 MG, UNK
  10. ATIVAN [Concomitant]
     Active Substance: LORAZEPAM
  11. GABAPENTIN. [Concomitant]
     Active Substance: GABAPENTIN
  12. LORAZEPAM. [Concomitant]
     Active Substance: LORAZEPAM
     Dosage: 0.5 MG, UNK
  13. MORPHINE [Concomitant]
     Active Substance: MORPHINE
     Dosage: 2 MG/ML, UNK
  14. OXYCODONE [Concomitant]
     Active Substance: OXYCODONE
     Dosage: 5 MG, UNK
  15. REGORAFENIB. [Suspect]
     Active Substance: REGORAFENIB
     Indication: OSTEOSARCOMA METASTATIC
     Dosage: UNK
     Dates: start: 20180223, end: 20180308
  16. LEVOTHYROXINE. [Concomitant]
     Active Substance: LEVOTHYROXINE

REACTIONS (4)
  - Pyrexia [Recovered/Resolved]
  - Hypovolaemic shock [Recovered/Resolved]
  - Rash [Recovering/Resolving]
  - Distributive shock [Recovered/Resolved]

NARRATIVE: CASE EVENT DATE: 20180304
